FAERS Safety Report 7946641-6 (Version None)
Quarter: 2011Q4

REPORT INFORMATION
  Report Type: 
  Country: None (occurrence: None)
  Receive Date: 20111129
  Receipt Date: 20111123
  Transmission Date: 20120403
  Serious: Yes (Other)
  Sender: FDA-Public Use
  Company Number: BR-AMGEN-BRASP2011062450

PATIENT
  Age: 57 Year
  Sex: Female
  Weight: 60 kg

DRUGS (4)
  1. ENBREL [Suspect]
     Indication: RHEUMATOID ARTHRITIS
     Dosage: 50 MG, 1X/WEEK
     Route: 058
     Dates: start: 20080101
  2. CORTISONE ACETATE [Suspect]
     Dosage: UNK
  3. LEFLUNOMIDE [Concomitant]
     Indication: RHEUMATOID ARTHRITIS
     Dosage: 20 MG, 1X/DAY (1 TABLET DAILY)
  4. ENBREL [Suspect]
     Dosage: UNK
     Route: 058
     Dates: start: 20110801

REACTIONS (2)
  - DIABETES MELLITUS [None]
  - INJECTION SITE PAIN [None]
